APPROVED DRUG PRODUCT: CALCIUM DISODIUM VERSENATE
Active Ingredient: EDETATE CALCIUM DISODIUM
Strength: 500MG
Dosage Form/Route: TABLET;ORAL
Application: N008922 | Product #002
Applicant: BAUSCH HEALTH US LLC
Approved: Approved Prior to Jan 1, 1982 | RLD: No | RS: No | Type: DISCN